FAERS Safety Report 17925172 (Version 1)
Quarter: 2020Q2

REPORT INFORMATION
  Report Type: Report from Study
  Country: GB (occurrence: GB)
  Receive Date: 20200622
  Receipt Date: 20200622
  Transmission Date: 20200714
  Serious: Yes (Hospitalization)
  Sender: FDA-Public Use
  Company Number: GB-JAZZ-2020-GB-007624

PATIENT
  Age: 71 Year
  Sex: Female

DRUGS (1)
  1. CPX-351 [Suspect]
     Active Substance: CYTARABINE\DAUNORUBICIN
     Indication: ACUTE MYELOID LEUKAEMIA
     Dosage: 100 UNITS/M2
     Route: 042
     Dates: start: 20200203, end: 20200207

REACTIONS (2)
  - Gamma-glutamyltransferase increased [Recovered/Resolved]
  - Lower respiratory tract infection [Recovered/Resolved]

NARRATIVE: CASE EVENT DATE: 20200205
